FAERS Safety Report 5274713-6 (Version None)
Quarter: 2007Q1

REPORT INFORMATION
  Report Type: 
  Country: None (occurrence: None)
  Receive Date: 20070320
  Receipt Date: 20070306
  Transmission Date: 20070707
  Serious: Yes (Death)
  Sender: FDA-Public Use
  Company Number: 2007AL000932

PATIENT
  Age: 77 Year
  Sex: Male

DRUGS (6)
  1. PHENYTOIN [Suspect]
     Indication: CONVULSION
  2. PHENYTOIN [Suspect]
     Indication: POST PROCEDURAL COMPLICATION
  3. LINEZOLID [Concomitant]
  4. CASPOFUNGIN [Concomitant]
  5. AMPHOTERICIN B LIPID [Concomitant]
  6. COMPLEX [Concomitant]

REACTIONS (13)
  - ASCITES [None]
  - CATHETER RELATED INFECTION [None]
  - DEEP VEIN THROMBOSIS [None]
  - ENTEROCOCCAL INFECTION [None]
  - GENERAL PHYSICAL HEALTH DETERIORATION [None]
  - KLEBSIELLA BACTERAEMIA [None]
  - MULTI-ORGAN FAILURE [None]
  - PATHOGEN RESISTANCE [None]
  - PELVIC FLUID COLLECTION [None]
  - PNEUMONIA [None]
  - RESPIRATORY DISTRESS [None]
  - SYSTEMIC CANDIDA [None]
  - UNDERDOSE [None]
